FAERS Safety Report 14140377 (Version 1)
Quarter: 2017Q4

REPORT INFORMATION
  Report Type: Spontaneous
  Country: US (occurrence: US)
  Receive Date: 20171030
  Receipt Date: 20171030
  Transmission Date: 20180321
  Serious: No
  Sender: FDA-Public Use
  Company Number: PHEH2017US033627

PATIENT
  Age: 67 Year
  Sex: Female

DRUGS (3)
  1. FULVESTRANT. [Concomitant]
     Active Substance: FULVESTRANT
     Indication: HORMONE LEVEL ABNORMAL
     Route: 065
  2. LISINOPRIL. [Concomitant]
     Active Substance: LISINOPRIL
     Indication: BLOOD PRESSURE ABNORMAL
     Dosage: 10 MG, QD
     Route: 048
  3. LETROZOLE. [Suspect]
     Active Substance: LETROZOLE
     Indication: BREAST CANCER
     Route: 065

REACTIONS (1)
  - Pain [Unknown]
